FAERS Safety Report 13630676 (Version 1)
Quarter: 2017Q2

REPORT INFORMATION
  Report Type: Spontaneous
  Country: US (occurrence: US)
  Receive Date: 20170531
  Receipt Date: 20170531
  Transmission Date: 20170830
  Serious: No
  Sender: FDA-Public Use
  Company Number: US-ASTELLAS-1319425

PATIENT
  Sex: Male

DRUGS (13)
  1. TARCEVA [Suspect]
     Active Substance: ERLOTINIB HYDROCHLORIDE
     Indication: HAEMOPTYSIS
  2. COREG [Concomitant]
     Active Substance: CARVEDILOL
  3. ASPIRIN. [Concomitant]
     Active Substance: ASPIRIN
  4. FLAXSEED [Concomitant]
     Active Substance: FLAX SEED
  5. TARCEVA [Suspect]
     Active Substance: ERLOTINIB HYDROCHLORIDE
     Indication: LUNG NEOPLASM MALIGNANT
     Route: 065
     Dates: start: 20121218
  6. LISINOPRIL. [Concomitant]
     Active Substance: LISINOPRIL
  7. GARLIC. [Concomitant]
     Active Substance: GARLIC
  8. GABAPENTIN. [Concomitant]
     Active Substance: GABAPENTIN
  9. ZOCOR [Concomitant]
     Active Substance: SIMVASTATIN
  10. FISH OIL [Concomitant]
     Active Substance: FISH OIL
  11. DOXYCYCLINE. [Concomitant]
     Active Substance: DOXYCYCLINE
  12. PRILOSEC [Concomitant]
     Active Substance: OMEPRAZOLE MAGNESIUM
  13. ZOMETA [Concomitant]
     Active Substance: ZOLEDRONIC ACID

REACTIONS (3)
  - Rash [Unknown]
  - Abdominal pain upper [Unknown]
  - Arthralgia [Unknown]
